FAERS Safety Report 5426410-1 (Version None)
Quarter: 2007Q3

REPORT INFORMATION
  Report Type: 
  Country: None (occurrence: None)
  Receive Date: 20070731
  Receipt Date: 20070419
  Transmission Date: 20080115
  Serious: No
  Sender: FDA-Public Use
  Company Number: US200704004618

PATIENT
  Age: 54 Year
  Sex: Male

DRUGS (5)
  1. BYETTA [Suspect]
     Indication: DIABETES MELLITUS
     Dosage: 5 UG, DAILY (1/D), SUBCUTANEOUS; 5 UG, DAILY (1/D), SUBCUTANEOUS; 5 UG, 2/D, SUBCUTANEOUS
     Route: 058
     Dates: start: 20070201, end: 20070101
  2. BYETTA [Suspect]
     Indication: DIABETES MELLITUS
     Dosage: 5 UG, DAILY (1/D), SUBCUTANEOUS; 5 UG, DAILY (1/D), SUBCUTANEOUS; 5 UG, 2/D, SUBCUTANEOUS
     Route: 058
     Dates: start: 20070401, end: 20070401
  3. BYETTA [Suspect]
     Indication: DIABETES MELLITUS
     Dosage: 5 UG, DAILY (1/D), SUBCUTANEOUS; 5 UG, DAILY (1/D), SUBCUTANEOUS; 5 UG, 2/D, SUBCUTANEOUS
     Route: 058
     Dates: start: 20070401
  4. METFORMIN HCL [Concomitant]
  5. MICRONASE [Concomitant]

REACTIONS (6)
  - BLOOD GLUCOSE INCREASED [None]
  - BLOOD KETONE BODY [None]
  - CELLULITIS [None]
  - PRURITUS [None]
  - SKIN INFECTION [None]
  - URINARY TRACT INFECTION [None]
